FAERS Safety Report 15353471 (Version 4)
Quarter: 2019Q3

REPORT INFORMATION
  Report Type: Report from Study
  Country: US (occurrence: US)
  Receive Date: 20180905
  Receipt Date: 20190731
  Transmission Date: 20191004
  Serious: Yes (Other)
  Sender: FDA-Public Use
  Company Number: PHEH2018US037055

PATIENT
  Age: 38 Year
  Sex: Female

DRUGS (1)
  1. AFINITOR [Suspect]
     Active Substance: EVEROLIMUS
     Indication: ANGIOMYOLIPOMA
     Dosage: 7.5 MG, QD
     Route: 048
     Dates: start: 20150811

REACTIONS (13)
  - Contusion [Unknown]
  - Alopecia [Unknown]
  - Road traffic accident [Unknown]
  - Menorrhagia [Unknown]
  - Peripheral swelling [Unknown]
  - Nausea [Unknown]
  - Stomatitis [Unknown]
  - Blood cholesterol increased [Unknown]
  - Acne [Not Recovered/Not Resolved]
  - Brain contusion [Unknown]
  - Fatigue [Unknown]
  - Diarrhoea [Unknown]
  - Blood pressure increased [Unknown]

NARRATIVE: CASE EVENT DATE: 20150811
